FAERS Safety Report 5849336-8 (Version None)
Quarter: 2008Q3

REPORT INFORMATION
  Report Type: 
  Country: None (occurrence: None)
  Receive Date: 20080819
  Receipt Date: 20070810
  Transmission Date: 20090109
  Serious: No
  Sender: FDA-Public Use
  Company Number: A0669483A

PATIENT
  Sex: Female

DRUGS (2)
  1. STELAZINE [Suspect]
     Indication: DEPRESSION
     Route: 048
     Dates: start: 19650101
  2. THYROID TAB [Concomitant]

REACTIONS (3)
  - GAIT DISTURBANCE [None]
  - MALAISE [None]
  - MEMORY IMPAIRMENT [None]
